FAERS Safety Report 7045069-3 (Version None)
Quarter: 2010Q4

REPORT INFORMATION
  Report Type: 
  Country: None (occurrence: None)
  Receive Date: 20101014
  Receipt Date: 20101005
  Transmission Date: 20110411
  Serious: Yes (Hospitalization)
  Sender: FDA-Public Use
  Company Number: FR-ABBOTT-10P-056-0664144-00

PATIENT
  Sex: Female

DRUGS (7)
  1. KALETRA [Suspect]
     Indication: HIV INFECTION
  2. TAXOTERE [Interacting]
     Indication: BREAST CANCER
     Route: 042
     Dates: start: 20100416, end: 20100416
  3. TRUVADA [Concomitant]
     Indication: HIV INFECTION
     Route: 048
  4. ENDOXAN [Concomitant]
     Indication: BREAST CANCER
     Route: 042
     Dates: start: 20100416, end: 20100416
  5. ENDOXAN [Concomitant]
  6. ISENTRESS [Concomitant]
     Indication: PRODUCT USED FOR UNKNOWN INDICATION
  7. TRACLEER [Concomitant]
     Indication: PRODUCT USED FOR UNKNOWN INDICATION

REACTIONS (6)
  - APHTHOUS STOMATITIS [None]
  - DRUG INTERACTION [None]
  - FEBRILE NEUTROPENIA [None]
  - ONYCHOLYSIS [None]
  - PYREXIA [None]
  - WEIGHT DECREASED [None]
